FAERS Safety Report 4964169-2 (Version None)
Quarter: 2006Q2

REPORT INFORMATION
  Report Type: 
  Country: None (occurrence: None)
  Receive Date: 20060406
  Receipt Date: 20060327
  Transmission Date: 20061013
  Serious: Yes (Hospitalization)
  Sender: FDA-Public Use
  Company Number: US-JNJFOC-20060306590

PATIENT
  Sex: Female
  Weight: 99.79 kg

DRUGS (9)
  1. REMICADE [Suspect]
     Route: 042
  2. REMICADE [Suspect]
     Route: 042
  3. REMICADE [Suspect]
     Indication: CROHN'S DISEASE
     Route: 042
  4. PREDNISONE [Suspect]
     Indication: PREMEDICATION
     Dosage: DAY OF AND DAY AFTER INFLIXIMAB INFUSION
  5. LIBRIUM [Concomitant]
  6. SOLUCORTIF [Concomitant]
     Indication: PREMEDICATION
     Route: 042
  7. CLARITIN [Concomitant]
     Indication: PREMEDICATION
  8. TYLENOL (CAPLET) [Concomitant]
     Indication: PREMEDICATION
  9. MEDROL [Concomitant]
     Dosage: WEEK AFTER INFLIXIMAB INFUSION

REACTIONS (7)
  - ABDOMINAL PAIN [None]
  - BACK PAIN [None]
  - CHEST PAIN [None]
  - CROHN'S DISEASE [None]
  - INFUSION RELATED REACTION [None]
  - SWELLING FACE [None]
  - TUBERCULOSIS [None]
